FAERS Safety Report 13699474 (Version 6)
Quarter: 2018Q1

REPORT INFORMATION
  Report Type: Report from Study
  Country: None (occurrence: AT)
  Receive Date: 20170628
  Receipt Date: 20180112
  Transmission Date: 20180508
  Serious: Yes (Hospitalization)
  Sender: FDA-Public Use
  Company Number: AT-ABBVIE-17K-009-2023525-00

PATIENT
  Age: 64 Year
  Sex: Male

DRUGS (7)
  1. DUODOPA [Suspect]
     Active Substance: CARBIDOPA\LEVODOPA
     Dosage: 24 H THERAPY:?MD: 4.5 ML?CR DAYTIME: 5.5 ML/H?CR NOCTURAL: 4.3 ML/H?ED: 2.5 ML
     Route: 050
     Dates: start: 201712
  2. DUODOPA [Suspect]
     Active Substance: CARBIDOPA\LEVODOPA
     Dosage: 16 H THERAPY:?MD 6 ML?CR DAYTIME: 3.2 ML/H?ED: 0.8 ML
     Route: 050
  3. LEPONEX [Concomitant]
     Active Substance: CLOZAPINE
     Indication: PRODUCT USED FOR UNKNOWN INDICATION
  4. MADOPAR CR [Concomitant]
     Active Substance: BENSERAZIDE HYDROCHLORIDE\LEVODOPA
     Indication: PRODUCT USED FOR UNKNOWN INDICATION
     Dosage: AT NIGHT
  5. DUODOPA [Suspect]
     Active Substance: CARBIDOPA\LEVODOPA
     Dosage: CR: 4.6
     Route: 050
  6. TEMESTA (LORAZEPAM) [Concomitant]
     Active Substance: LORAZEPAM
     Indication: PRODUCT USED FOR UNKNOWN INDICATION
  7. DUODOPA [Suspect]
     Active Substance: CARBIDOPA\LEVODOPA
     Indication: PARKINSON^S DISEASE
     Dosage: MD 4ML?KR DAY 4.5 ML/H?KR NIGHT 4.2 ML/H?ED 0.7 ML
     Route: 050
     Dates: start: 20120723

REACTIONS (6)
  - Mental disorder [Not Recovered/Not Resolved]
  - Hyperventilation [Recovering/Resolving]
  - Device occlusion [Unknown]
  - Panic attack [Recovered/Resolved]
  - Panic attack [Recovering/Resolving]
  - Hallucination [Recovering/Resolving]

NARRATIVE: CASE EVENT DATE: 20170625
